FAERS Safety Report 9008236 (Version 1)
Quarter: 2013Q1

REPORT INFORMATION
  Report Type: Spontaneous
  Country: US (occurrence: US)
  Receive Date: 20130111
  Receipt Date: 20130111
  Transmission Date: 20140127
  Serious: Yes (Life-Threatening, Hospitalization, Disabling)
  Sender: FDA-Public Use
  Company Number: US-009507513-1301USA003129

PATIENT
  Age: 82 Year
  Sex: Female

DRUGS (30)
  1. SINGULAIR [Suspect]
     Indication: ASTHMA
     Dosage: 10 MG, UNK
     Route: 048
  2. SINGULAIR [Suspect]
     Indication: BACK PAIN
     Dosage: 200 MG, QD
     Route: 048
  3. SINGULAIR [Suspect]
     Indication: CEREBRAL INFARCTION
  4. SINGULAIR [Suspect]
     Indication: CHOLELITHIASIS
  5. SINGULAIR [Suspect]
     Indication: HYPERTENSION
  6. CLARITIN [Suspect]
     Indication: ASTHMA
     Route: 048
  7. CLARITIN [Suspect]
     Indication: BACK PAIN
  8. CLARITIN [Suspect]
     Indication: CEREBRAL INFARCTION
  9. CLARITIN [Suspect]
     Indication: CHOLELITHIASIS
  10. CLARITIN [Suspect]
     Indication: HYPERTENSION
  11. MUCODYNE [Suspect]
     Indication: ASTHMA
     Route: 048
  12. MUCODYNE [Suspect]
     Indication: BACK PAIN
  13. MUCODYNE [Suspect]
     Indication: CEREBRAL INFARCTION
  14. MUCODYNE [Suspect]
     Indication: CHOLELITHIASIS
  15. MUCODYNE [Suspect]
     Indication: HYPERTENSION
  16. PULMICORT RESPULES [Suspect]
     Indication: ASTHMA
     Route: 048
  17. PULMICORT RESPULES [Suspect]
     Indication: BACK PAIN
  18. PULMICORT RESPULES [Suspect]
     Indication: CEREBRAL INFARCTION
  19. PULMICORT RESPULES [Suspect]
     Indication: CHOLELITHIASIS
  20. PULMICORT RESPULES [Suspect]
     Indication: HYPERTENSION
  21. INTAL [Suspect]
     Indication: HYPERTENSION
     Route: 048
  22. INTAL [Suspect]
     Indication: CHOLELITHIASIS
  23. INTAL [Suspect]
     Indication: CEREBRAL INFARCTION
  24. INTAL [Suspect]
     Indication: BACK PAIN
  25. INTAL [Suspect]
     Indication: ASTHMA
  26. THEOPHYLLINE [Suspect]
     Indication: HYPERTENSION
     Route: 048
  27. THEOPHYLLINE [Suspect]
     Indication: CHOLELITHIASIS
  28. THEOPHYLLINE [Suspect]
     Indication: CEREBRAL INFARCTION
  29. THEOPHYLLINE [Suspect]
     Indication: BACK PAIN
  30. THEOPHYLLINE [Suspect]
     Indication: ASTHMA

REACTIONS (2)
  - Tubulointerstitial nephritis [Unknown]
  - Leukocytoclastic vasculitis [Unknown]
